FAERS Safety Report 25428857 (Version 2)
Quarter: 2025Q2

REPORT INFORMATION
  Report Type: Spontaneous
  Country: NL (occurrence: NL)
  Receive Date: 20250612
  Receipt Date: 20250624
  Transmission Date: 20250716
  Serious: Yes (Other)
  Sender: UCB
  Company Number: NL-UCBSA-2025034382

PATIENT
  Age: 56 Year
  Sex: Female

DRUGS (2)
  1. NEUPRO [Suspect]
     Active Substance: ROTIGOTINE
     Indication: Parkinson^s disease
     Route: 062
     Dates: start: 2012
  2. NEUPRO [Suspect]
     Active Substance: ROTIGOTINE
     Route: 062
     Dates: start: 2019

REACTIONS (4)
  - Deep brain stimulation [Unknown]
  - Product adhesion issue [Unknown]
  - Intentional dose omission [Unknown]
  - Drug ineffective [Unknown]
